FAERS Safety Report 16212039 (Version 1)
Quarter: 2019Q2

REPORT INFORMATION
  Report Type: Spontaneous
  Country: US (occurrence: US)
  Receive Date: 20190315
  Receipt Date: 20190315
  Transmission Date: 20190711
  Serious: No
  Sender: FDA-Public Use
  Company Number: None

PATIENT
  Age: 52 Year
  Sex: Female

DRUGS (14)
  1. MORPHINE [Concomitant]
     Active Substance: MORPHINE
  2. LYRICA [Concomitant]
     Active Substance: PREGABALIN
  3. MELATONIN [Concomitant]
     Active Substance: MELATONIN
  4. LISINOPRIL. [Concomitant]
     Active Substance: LISINOPRIL
  5. ASPIRIN EC [Concomitant]
     Active Substance: ASPIRIN
  6. SEROQUEL [Concomitant]
     Active Substance: QUETIAPINE FUMARATE
  7. GLATIRAMER 20MG PFS INJ (30/BOX) [Suspect]
     Active Substance: GLATIRAMER
     Indication: MULTIPLE SCLEROSIS
     Route: 058
  8. OMEPRAZOLE. [Concomitant]
     Active Substance: OMEPRAZOLE
  9. PREMARIN [Concomitant]
     Active Substance: ESTROGENS, CONJUGATED
  10. VITAMIN D NOS [Concomitant]
     Active Substance: VITAMIN D NOS
  11. HYDROCHLOROTHIAZIDE. [Concomitant]
     Active Substance: HYDROCHLOROTHIAZIDE
  12. OXYCODONE [Concomitant]
     Active Substance: OXYCODONE
  13. CYMBALTA [Concomitant]
     Active Substance: DULOXETINE HYDROCHLORIDE
  14. HYDROXYZINE [Concomitant]
     Active Substance: HYDROXYZINE HYDROCHLORIDE

REACTIONS (2)
  - Vomiting [None]
  - Abdominal pain upper [None]

NARRATIVE: CASE EVENT DATE: 20190115
